FAERS Safety Report 19233696 (Version 1)
Quarter: 2021Q2

REPORT INFORMATION
  Report Type: Spontaneous
  Country: CN (occurrence: CN)
  Receive Date: 20210507
  Receipt Date: 20210507
  Transmission Date: 20210717
  Serious: Yes (Other)
  Sender: FDA-Public Use
  Company Number: CN-GLAXOSMITHKLINE-CN2021APC096082

PATIENT
  Age: 75 Year
  Sex: Male

DRUGS (2)
  1. ZINACEF [Suspect]
     Active Substance: CEFUROXIME SODIUM
     Indication: INFECTION PROPHYLAXIS
     Dosage: 1.5 G, QD
     Route: 042
     Dates: start: 20210421, end: 20210421
  2. SODIUM CHLORIDE. [Concomitant]
     Active Substance: SODIUM CHLORIDE
     Indication: VEHICLE SOLUTION USE
     Dosage: UNK,250ML
     Route: 042
     Dates: start: 20210421, end: 20210421

REACTIONS (4)
  - Anaphylactic shock [Recovering/Resolving]
  - Coma [Recovering/Resolving]
  - Blood pressure decreased [Recovering/Resolving]
  - Oxygen saturation decreased [Recovering/Resolving]

NARRATIVE: CASE EVENT DATE: 20210421
